FAERS Safety Report 24863367 (Version 1)
Quarter: 2025Q1

REPORT INFORMATION
  Report Type: Spontaneous
  Country: US (occurrence: US)
  Receive Date: 20250120
  Receipt Date: 20250120
  Transmission Date: 20250408
  Serious: Yes (Death)
  Sender: AMGEN
  Company Number: US-AMGEN-USASP2025009122

PATIENT

DRUGS (1)
  1. PREDNISONE [Suspect]
     Active Substance: PREDNISONE
     Indication: COVID-19
     Route: 065

REACTIONS (10)
  - COVID-19 [Fatal]
  - Depression [Unknown]
  - Sleep disorder [Unknown]
  - Fatigue [Unknown]
  - Dyspnoea [Unknown]
  - Anxiety [Unknown]
  - Fall [Unknown]
  - Autonomic nervous system imbalance [Unknown]
  - Off label use [Unknown]
  - Headache [Unknown]
